FAERS Safety Report 6206289-0 (Version None)
Quarter: 2009Q2

REPORT INFORMATION
  Report Type: 
  Country: None (occurrence: None)
  Receive Date: 20090528
  Receipt Date: 20090522
  Transmission Date: 20091009
  Serious: Yes (Death)
  Sender: FDA-Public Use
  Company Number: FI-ROCHE-595698

PATIENT
  Sex: Female
  Weight: 86 kg

DRUGS (16)
  1. METHOXY POLYETHYLENE GLYCOL-EPOETIN BETA [Suspect]
     Route: 058
     Dates: start: 20080614, end: 20081030
  2. ATORVASTATIN CALCIUM [Concomitant]
     Dates: start: 20060226, end: 20081104
  3. LEVOTHYROXINE SODIUM [Concomitant]
     Dates: start: 20020101, end: 20081104
  4. FUROSEMIDE [Concomitant]
     Dates: start: 20060615, end: 20081104
  5. OMEPRAZOL [Concomitant]
     Dates: start: 20070430, end: 20081104
  6. EZETIMIBE [Concomitant]
     Dates: start: 20071219, end: 20081104
  7. RISEDRONATE SODIUM [Concomitant]
     Dates: start: 20070301, end: 20081104
  8. CALCIUM CARBONATE [Concomitant]
     Dates: start: 20070430, end: 20081104
  9. OLMESARTAN MEDOXOMIL [Concomitant]
     Dosage: DRUG: OLMESARTAN
     Dates: start: 20060615, end: 20081104
  10. PERINDOPRIL [Concomitant]
     Dates: start: 20070912, end: 20081104
  11. BISOPROLOL [Concomitant]
     Dates: start: 20080317, end: 20081104
  12. ACETYLSALICYLIC ACID SRT [Concomitant]
     Dates: start: 20060226, end: 20081104
  13. PREDNISOLONE [Concomitant]
     Dates: start: 20060328, end: 20081104
  14. CINACALCET [Concomitant]
     Dates: start: 20071219, end: 20081104
  15. IRON SUCROSE [Concomitant]
     Dosage: DRUG: IRON SACCAROSE.
     Dates: start: 20080612, end: 20081104
  16. 1 ALFACALCIDOL [Concomitant]
     Dates: start: 20081002, end: 20081104

REACTIONS (1)
  - DEATH [None]
